FAERS Safety Report 8358339-3 (Version None)
Quarter: 2012Q2

REPORT INFORMATION
  Report Type: 
  Country: None (occurrence: None)
  Receive Date: 20120514
  Receipt Date: 20110426
  Transmission Date: 20120825
  Serious: No
  Sender: FDA-Public Use
  Company Number: US-ALEXION-A201100597

PATIENT
  Sex: Female

DRUGS (2)
  1. SOLIRIS [Suspect]
     Indication: PAROXYSMAL NOCTURNAL HAEMOGLOBINURIA
     Dosage: 600 MG, UNK
     Route: 042
     Dates: start: 20100323, end: 20100401
  2. SOLIRIS [Suspect]
     Dosage: 900 MG Q2W
     Route: 042
     Dates: start: 20100401

REACTIONS (1)
  - TRAUMATIC HAEMATOMA [None]
